FAERS Safety Report 25955270 (Version 1)
Quarter: 2025Q4

REPORT INFORMATION
  Report Type: Report from Study
  Country: US (occurrence: US)
  Receive Date: 20251024
  Receipt Date: 20251024
  Transmission Date: 20260118
  Serious: Yes (Death, Hospitalization)
  Sender: IPSEN BIOPHARMACEUTICALS, INC.
  Company Number: US-MERRIMACK PHARMACEUTICALS, INC.-MER-2016-000172

PATIENT
  Age: 6 Year
  Sex: Male

DRUGS (36)
  1. ONIVYDE [Suspect]
     Active Substance: IRINOTECAN HYDROCHLORIDE
     Indication: Rhabdomyosarcoma
     Dosage: 0.95 MG/M2, UNK
     Dates: start: 20151007, end: 20160224
  2. CYCLOPHOSPHAMIDE [Suspect]
     Active Substance: CYCLOPHOSPHAMIDE
     Indication: Neoplasm
     Dosage: 5.60 MG/DAY X 141 DAYS
     Dates: start: 20151005, end: 20160226
  3. MEGACE [Concomitant]
     Active Substance: MEGESTROL ACETATE
     Indication: Increased appetite
     Dosage: 40 MG, TID
     Dates: start: 20160307, end: 20160309
  4. DIPHENHYDRAMINE [Concomitant]
     Active Substance: DIPHENHYDRAMINE
     Indication: Nausea
     Dosage: 12.5 MG, Q6H PRN
  5. ONDANSETRON HYDROCHLORIDE [Concomitant]
     Active Substance: ONDANSETRON HYDROCHLORIDE
     Indication: Nausea
     Dosage: 2 MG, Q6H PRN
  6. MIRALAX [Concomitant]
     Active Substance: POLYETHYLENE GLYCOL 3350
     Indication: Constipation
     Dosage: 0.25 CAPFUL, BID PRN
     Dates: start: 20160311, end: 20160318
  7. DAPSONE [Concomitant]
     Active Substance: DAPSONE
     Indication: Prophylaxis
     Dosage: 62.5 MG, QWK
     Dates: start: 20151116
  8. MORPHINE SULFATE [Concomitant]
     Active Substance: MORPHINE SULFATE
     Indication: Pain
     Dosage: 4 MG, Q4 TO 6 HR PRN
     Dates: start: 20160310, end: 20160418
  9. SULFAMETHOXAZOLE [Concomitant]
     Active Substance: SULFAMETHOXAZOLE
     Indication: Pneumocystis jirovecii infection
     Dosage: 60 MG, Q6H
     Dates: start: 20160309, end: 20160329
  10. DEXAMETHASONE [Concomitant]
     Active Substance: DEXAMETHASONE
     Indication: Pneumocystis jirovecii infection
     Dosage: 8.4 MG, UNK
     Dates: start: 20160320, end: 20160320
  11. DEXAMETHASONE [Concomitant]
     Active Substance: DEXAMETHASONE
     Dosage: 50 MCG, 3 DOSES
     Dates: start: 20160310, end: 20160312
  12. FENTANYL [Concomitant]
     Active Substance: FENTANYL
     Indication: Sedation
     Dosage: 50 UG, UNK
     Dates: start: 20160310, end: 20160312
  13. FENTANYL [Concomitant]
     Active Substance: FENTANYL
     Dosage: 28 ?G, QH PRN
     Dates: start: 20160311
  14. BENADRYL [Concomitant]
     Active Substance: DIPHENHYDRAMINE HYDROCHLORIDE
     Indication: Nausea
     Dosage: 12.5 MG, UNK
     Dates: start: 20160322, end: 20160328
  15. LASIX [Concomitant]
     Active Substance: FUROSEMIDE
     Indication: Polyuria
     Dosage: UNK UNK, Q8H
     Dates: start: 20160313, end: 20160328
  16. LASIX [Concomitant]
     Active Substance: FUROSEMIDE
     Indication: Product used for unknown indication
  17. POTASSIUM CHLORIDE [Concomitant]
     Active Substance: POTASSIUM CHLORIDE
     Indication: Hypokalaemia
     Dosage: 14 MEQ, QH PRN
     Dates: start: 20160314, end: 20160318
  18. AZITHROMYCIN [Concomitant]
     Active Substance: AZITHROMYCIN
     Indication: Pneumonia
     Dosage: 140 MG, UNK
  19. AZITHROMYCIN [Concomitant]
     Active Substance: AZITHROMYCIN
     Dosage: 70 MG, UNK
     Dates: start: 20160310, end: 20160311
  20. CEFEPIME [Concomitant]
     Active Substance: CEFEPIME HYDROCHLORIDE
     Dosage: 100 MG, Q8H
     Dates: start: 20160320, end: 20160323
  21. ACETAMINOPHEN [Concomitant]
     Active Substance: ACETAMINOPHEN
     Indication: Pyrexia
     Dosage: 140 MG, 2 DOSES
     Dates: start: 20160309, end: 20160310
  22. ACETAMINOPHEN [Concomitant]
     Active Substance: ACETAMINOPHEN
     Indication: Pain
     Dosage: 106 MG, Q4H
     Dates: start: 20160319, end: 20160320
  23. CEFTRIAXONE [Concomitant]
     Active Substance: CEFTRIAXONE
     Dosage: 1000 MG, QD
     Dates: start: 20160309, end: 20160311
  24. ACETAZOLAMIDE [Concomitant]
     Active Substance: ACETAZOLAMIDE
     Indication: Polyuria
     Dosage: 10 MG, UNK
  25. ACETAZOLAMIDE [Concomitant]
     Active Substance: ACETAZOLAMIDE
     Dosage: 70 MG, 2 DOSES
     Dates: start: 20160315, end: 20160315
  26. ALBUTEROL [Concomitant]
     Active Substance: ALBUTEROL
     Indication: Wheezing
     Dosage: 2.5 MG, Q4H PRN
     Dates: start: 20160310, end: 20160320
  27. ATIVAN [Concomitant]
     Active Substance: LORAZEPAM
     Indication: Anxiety
     Dosage: 1 MG, UNK
     Dates: start: 20160309, end: 20160311
  28. KEPPRA [Concomitant]
     Active Substance: LEVETIRACETAM
     Indication: Prophylaxis
     Dosage: 140 MG, Q12H
     Dates: start: 20160320, end: 20160321
  29. VANCOMYCIN [Concomitant]
     Active Substance: VANCOMYCIN
     Dosage: 275 MG, Q6H
     Dates: start: 20160320, end: 20160321
  30. KETAMINE [Concomitant]
     Active Substance: KETAMINE
     Indication: Sedation
     Dosage: 2 MG, UNK
     Dates: start: 20160312, end: 20160314
  31. OMEPRAZOLE [Concomitant]
     Active Substance: OMEPRAZOLE
     Indication: Gastritis prophylaxis
     Dosage: 15 MG, FEED TUBE
     Dates: start: 20160317, end: 20160329
  32. METHADONE [Concomitant]
     Active Substance: METHADONE HYDROCHLORIDE
     Indication: Sedation
     Dosage: UNK
  33. AMPHOTERICIN B [Concomitant]
     Active Substance: AMPHOTERICIN B
     Dosage: 45 MG, Q24 HR
     Dates: start: 20160310, end: 20160312
  34. AMPHOTERICIN B [Concomitant]
     Active Substance: AMPHOTERICIN B
     Dosage: 45 MG, Q24 HR
     Dates: start: 20160310, end: 20160312
  35. CISATRACURIUM [Concomitant]
     Active Substance: CISATRACURIUM
     Indication: Endotracheal intubation
     Dosage: 20 ML, 1 DOSE
     Dates: start: 20160310, end: 20160310
  36. ROBINUL [Concomitant]
     Active Substance: GLYCOPYRROLATE
     Indication: Sedation
     Dosage: Q4 HR PRN
     Dates: start: 20160415, end: 20160419

REACTIONS (4)
  - Disease progression [Fatal]
  - Pneumocystis jirovecii infection [Recovered/Resolved]
  - Dyspnoea [Unknown]
  - Cough [Unknown]

NARRATIVE: CASE EVENT DATE: 20160101
